FAERS Safety Report 5526373-4 (Version None)
Quarter: 2007Q4

REPORT INFORMATION
  Report Type: 
  Country: None (occurrence: None)
  Receive Date: 20071121
  Receipt Date: 20071121
  Transmission Date: 20080405
  Serious: Yes (Hospitalization)
  Sender: FDA-Public Use
  Company Number: None

PATIENT
  Age: 59 Year
  Sex: Male

DRUGS (2)
  1. DROTRECOGIN ALFA [Suspect]
     Indication: NEUTROPENIC SEPSIS
     Dosage: 20MG ONCE IV
     Route: 042
     Dates: start: 20070708, end: 20070708
  2. DROTRECOGIN ALFA [Suspect]
     Indication: SEPTIC SHOCK
     Dosage: 20MG ONCE IV
     Route: 042
     Dates: start: 20070708, end: 20070708

REACTIONS (1)
  - HAEMORRHAGE [None]
